FAERS Safety Report 4980367-6 (Version None)
Quarter: 2006Q2

REPORT INFORMATION
  Report Type: 
  Country: None (occurrence: None)
  Receive Date: 20060424
  Receipt Date: 20060315
  Transmission Date: 20061013
  Serious: Yes (Hospitalization, Other)
  Sender: FDA-Public Use
  Company Number: PHBS2006JP04137

PATIENT
  Age: 30 Year
  Sex: Female
  Weight: 50 kg

DRUGS (2)
  1. PREDNISOLONE [Suspect]
     Indication: LUPUS NEPHRITIS
     Dosage: 5 MG/D
     Route: 065
     Dates: start: 20040421
  2. NEORAL [Suspect]
     Indication: LUPUS NEPHRITIS
     Dosage: 100 MG/D
     Route: 048
     Dates: start: 20040421

REACTIONS (4)
  - ABORTION MISSED [None]
  - DRUG EXPOSURE DURING PREGNANCY [None]
  - OSTEONECROSIS [None]
  - UTERINE DILATION AND CURETTAGE [None]
